FAERS Safety Report 18363321 (Version 1)
Quarter: 2020Q4

REPORT INFORMATION
  Report Type: Spontaneous
  Country: CA (occurrence: CA)
  Receive Date: 20201008
  Receipt Date: 20201008
  Transmission Date: 20210114
  Serious: Yes (Other)
  Sender: FDA-Public Use
  Company Number: CA-BAXTER-2020BAX018943

PATIENT

DRUGS (1)
  1. ARTISS FROZEN [Suspect]
     Active Substance: FIBRINOGEN HUMAN\THROMBIN HUMAN
     Indication: SKIN GRAFT
     Dosage: VIA EASY SPRAY DEVICE
     Route: 061

REACTIONS (2)
  - Transplant failure [Unknown]
  - Drug ineffective [Unknown]
